FAERS Safety Report 7617970-0 (Version None)
Quarter: 2011Q3

REPORT INFORMATION
  Report Type: 
  Country: None (occurrence: None)
  Receive Date: 20110718
  Receipt Date: 20110706
  Transmission Date: 20111222
  Serious: Yes (Other)
  Sender: FDA-Public Use
  Company Number: PHHY2011US48227

PATIENT
  Sex: Female
  Weight: 59.864 kg

DRUGS (1)
  1. EXJADE [Suspect]
     Indication: THALASSAEMIA
     Dosage: 1500 MG, QD
     Route: 048
     Dates: start: 20060110

REACTIONS (4)
  - URINARY TRACT INFECTION [None]
  - CYSTITIS [None]
  - CONSTIPATION [None]
  - DIARRHOEA [None]
